FAERS Safety Report 4855545-7 (Version None)
Quarter: 2005Q4

REPORT INFORMATION
  Report Type: 
  Country: None (occurrence: None)
  Receive Date: 20051214
  Receipt Date: 20051201
  Transmission Date: 20060501
  Serious: Yes (Death, Life-Threatening)
  Sender: FDA-Public Use
  Company Number: HQWYE477415SEP05

PATIENT
  Age: 64 Year
  Sex: Male

DRUGS (12)
  1. GEMTUZUMAB OZOGAMICIN (GEMTUZUMAB OZOGAMICIN, INJECTION) [Suspect]
     Indication: ACUTE MYELOID LEUKAEMIA
     Dosage: A SINGLE 11 MG DOSE
     Dates: start: 20050829, end: 20050829
  2. ALLOPURINOL [Concomitant]
  3. FLUCONAZOLE [Concomitant]
  4. ZOVIRAX [Concomitant]
  5. TRAMADOL HCL [Concomitant]
  6. EUSAPRIM FORTE (SULFAMETHOXAZOLE/TRIMETHOPRIM) [Concomitant]
  7. CORSODYL (CHLORHEXIDINE GLUCONATE) [Concomitant]
  8. NYSTATIN [Concomitant]
  9. TARGOCID [Concomitant]
  10. LASIX [Concomitant]
  11. ZANTAC [Concomitant]
  12. ACETAMINOPHEN [Concomitant]

REACTIONS (2)
  - EMPHYSEMA [None]
  - HYPOXIA [None]
